FAERS Safety Report 23186157 (Version 2)
Quarter: 2023Q4

REPORT INFORMATION
  Report Type: Spontaneous
  Country: JP (occurrence: JP)
  Receive Date: 20231115
  Receipt Date: 20231116
  Transmission Date: 20240109
  Serious: Yes (Death)
  Sender: FDA-Public Use
  Company Number: JP-JNJFOC-20231129783

PATIENT
  Sex: Male

DRUGS (3)
  1. OPSUMIT [Suspect]
     Active Substance: MACITENTAN
     Indication: Product used for unknown indication
     Dosage: DOSE UNKNOWN AND THERAPY END DATE //2023
     Route: 050
     Dates: start: 20230905
  2. UPTRAVI [Suspect]
     Active Substance: SELEXIPAG
     Indication: Atrioventricular septal defect
     Dosage: END DATE: 09/NOV/2023
     Route: 045
     Dates: start: 20230905
  3. ADCIRCA [Concomitant]
     Active Substance: TADALAFIL
     Indication: Atrioventricular septal defect
     Dosage: END DATE : //2023
     Dates: start: 20230905

REACTIONS (3)
  - Atrioventricular septal defect [Fatal]
  - Off label use [Unknown]
  - Off label use [Unknown]

NARRATIVE: CASE EVENT DATE: 20230905
